FAERS Safety Report 10976744 (Version 5)
Quarter: 2015Q2

REPORT INFORMATION
  Report Type: Spontaneous
  Country: US (occurrence: US)
  Receive Date: 20150401
  Receipt Date: 20150508
  Transmission Date: 20150821
  Serious: Yes (Hospitalization)
  Sender: FDA-Public Use
  Company Number: US-ALLERGAN-1425238US

PATIENT
  Age: 81 Year
  Sex: Female
  Weight: 39 kg

DRUGS (4)
  1. LUMIGAN [Suspect]
     Active Substance: BIMATOPROST
     Indication: PRODUCT USED FOR UNKNOWN INDICATION
     Dosage: UNK
     Route: 047
     Dates: start: 200907
  2. TRAVATAN [Suspect]
     Active Substance: TRAVOPROST
     Indication: PRODUCT USED FOR UNKNOWN INDICATION
     Dosage: UNK
     Route: 047
     Dates: start: 200907
  3. XALATAN [Suspect]
     Active Substance: LATANOPROST
     Indication: PRODUCT USED FOR UNKNOWN INDICATION
     Dosage: 1 GTT, QHS
     Route: 047
     Dates: start: 2009
  4. LATANOPROST. [Suspect]
     Active Substance: LATANOPROST
     Indication: GLAUCOMA
     Dosage: 2 GTT, QHS
     Route: 047
     Dates: start: 200907

REACTIONS (15)
  - Eye irritation [Unknown]
  - Eye discharge [Unknown]
  - Vision blurred [Unknown]
  - Skin swelling [Unknown]
  - Dry eye [Unknown]
  - Visual impairment [Unknown]
  - Weight decreased [Unknown]
  - Periorbital oedema [Recovered/Resolved]
  - Influenza [Unknown]
  - Skin discolouration [Recovered/Resolved]
  - Panic reaction [Unknown]
  - Eye pain [Unknown]
  - Ocular hyperaemia [Unknown]
  - Visual field defect [Unknown]
  - Stress [Unknown]

NARRATIVE: CASE EVENT DATE: 200907
